FAERS Safety Report 5706957-0 (Version None)
Quarter: 2008Q2

REPORT INFORMATION
  Report Type: 
  Country: None (occurrence: None)
  Receive Date: 20080416
  Receipt Date: 20080404
  Transmission Date: 20081010
  Serious: Yes (Other)
  Sender: FDA-Public Use
  Company Number: CH-AMGEN-US260008

PATIENT
  Age: 72 Year
  Sex: Female

DRUGS (2)
  1. ENBREL [Suspect]
     Indication: POLYARTHRITIS
     Dosage: UNKNOWN
     Route: 065
     Dates: start: 20030101
  2. BISPHOSPHONATE [Concomitant]

REACTIONS (1)
  - ANAL CANCER METASTATIC [None]
